FAERS Safety Report 5680731-6 (Version None)
Quarter: 2008Q1

REPORT INFORMATION
  Report Type: 
  Country: None (occurrence: None)
  Receive Date: 20080325
  Receipt Date: 20080131
  Transmission Date: 20080703
  Serious: No
  Sender: FDA-Public Use
  Company Number: ADE# 08-015

PATIENT
  Age: 67 Year
  Sex: Female

DRUGS (1)
  1. SALSALATE TABLETS, USP, 750MG [Suspect]
     Dosage: 1 TABLET 2XDAILY
     Dates: start: 20080118

REACTIONS (1)
  - MEDICATION RESIDUE [None]
